FAERS Safety Report 8479398-3 (Version None)
Quarter: 2012Q2

REPORT INFORMATION
  Report Type: 
  Country: None (occurrence: None)
  Receive Date: 20120629
  Receipt Date: 20120619
  Transmission Date: 20120825
  Serious: Yes (Other)
  Sender: FDA-Public Use
  Company Number: FR-BRISTOL-MYERS SQUIBB COMPANY-16726481

PATIENT
  Age: 36 Year
  Sex: Female

DRUGS (1)
  1. MITOTANE [Suspect]
     Indication: ADRENOCORTICAL CARCINOMA
     Dosage: 1DF=9-12 G/DAY

REACTIONS (4)
  - NAUSEA [None]
  - DIZZINESS [None]
  - BLINDNESS [None]
  - SOMNOLENCE [None]
